FAERS Safety Report 15939737 (Version 6)
Quarter: 2019Q4

REPORT INFORMATION
  Report Type: Spontaneous
  Country: US (occurrence: US)
  Receive Date: 20190208
  Receipt Date: 20191114
  Transmission Date: 20200122
  Serious: Yes (Hospitalization, Other)
  Sender: FDA-Public Use
  Company Number: US-ASTRAZENECA-2018SF14887

PATIENT
  Age: 25289 Day
  Sex: Male
  Weight: 98.4 kg

DRUGS (36)
  1. PRILOSEC [Suspect]
     Active Substance: OMEPRAZOLE MAGNESIUM
     Indication: GASTROOESOPHAGEAL REFLUX DISEASE
     Route: 048
     Dates: start: 201408, end: 201605
  2. NEXIUM 24HR [Suspect]
     Active Substance: ESOMEPRAZOLE MAGNESIUM
     Route: 048
  3. PRILOSEC OTC [Suspect]
     Active Substance: OMEPRAZOLE MAGNESIUM
     Route: 048
  4. PRAVASTATIN. [Concomitant]
     Active Substance: PRAVASTATIN
     Indication: CORONARY ARTERY DISEASE
     Dates: start: 2015
  5. ACETAMINOPHEN. [Concomitant]
     Active Substance: ACETAMINOPHEN
     Indication: ANALGESIC THERAPY
  6. PREVACID [Suspect]
     Active Substance: LANSOPRAZOLE
     Indication: GASTROOESOPHAGEAL REFLUX DISEASE
     Route: 065
     Dates: start: 201408, end: 201605
  7. DOXYCYLINE [Concomitant]
     Active Substance: DOXYCYCLINE
     Indication: INFECTION
     Dates: start: 20171121
  8. PEPCID AC [Concomitant]
     Active Substance: FAMOTIDINE
     Dosage: OTC
  9. TAGAMET HB [Concomitant]
     Active Substance: CIMETIDINE
     Dosage: OTC
  10. ROLAIDS [Concomitant]
     Active Substance: CALCIUM CARBONATE\MAGNESIUM HYDROXIDE
     Dosage: OTC
     Dates: start: 1995, end: 2016
  11. PRILOSEC [Suspect]
     Active Substance: OMEPRAZOLE MAGNESIUM
     Indication: GASTROOESOPHAGEAL REFLUX DISEASE
     Route: 048
     Dates: start: 20140804, end: 20150317
  12. PREVACID [Suspect]
     Active Substance: LANSOPRAZOLE
     Indication: GASTROOESOPHAGEAL REFLUX DISEASE
     Route: 065
     Dates: start: 201408, end: 201605
  13. PROTONIX [Suspect]
     Active Substance: PANTOPRAZOLE SODIUM
     Indication: GASTROOESOPHAGEAL REFLUX DISEASE
     Route: 065
     Dates: start: 20150117, end: 20160518
  14. FENOFIBRATE. [Concomitant]
     Active Substance: FENOFIBRATE
     Indication: CORONARY ARTERY DISEASE
     Dates: start: 2015
  15. NEXIUM [Suspect]
     Active Substance: ESOMEPRAZOLE MAGNESIUM
     Route: 048
  16. PREVACID [Suspect]
     Active Substance: LANSOPRAZOLE
     Indication: GASTROOESOPHAGEAL REFLUX DISEASE
     Route: 065
     Dates: start: 19950510, end: 20100101
  17. PREVACID [Suspect]
     Active Substance: LANSOPRAZOLE
     Indication: GASTROOESOPHAGEAL REFLUX DISEASE
     Route: 065
     Dates: start: 19950510, end: 20100101
  18. PRILOSEC [Suspect]
     Active Substance: OMEPRAZOLE MAGNESIUM
     Indication: GASTROOESOPHAGEAL REFLUX DISEASE
     Route: 048
     Dates: start: 20140804, end: 20150317
  19. PREVACID [Suspect]
     Active Substance: LANSOPRAZOLE
     Indication: GASTROOESOPHAGEAL REFLUX DISEASE
     Route: 065
     Dates: start: 19950510, end: 20100101
  20. CEPHALEXIN. [Concomitant]
     Active Substance: CEPHALEXIN
     Indication: INFECTION
     Dates: start: 20171107
  21. IMDUR [Concomitant]
     Active Substance: ISOSORBIDE MONONITRATE
     Indication: MYOCARDIAL INFARCTION
     Dates: start: 2015
  22. REGLAN [Concomitant]
     Active Substance: METOCLOPRAMIDE HYDROCHLORIDE
     Indication: DYSPEPSIA
     Dates: start: 2015
  23. METOPROLOL. [Concomitant]
     Active Substance: METOPROLOL
     Indication: CHEST PAIN
     Dates: start: 2015
  24. PREVACID [Suspect]
     Active Substance: LANSOPRAZOLE
     Indication: GASTROOESOPHAGEAL REFLUX DISEASE
     Route: 065
     Dates: start: 19950510, end: 20100101
  25. PREVACID [Suspect]
     Active Substance: LANSOPRAZOLE
     Indication: GASTROOESOPHAGEAL REFLUX DISEASE
     Route: 065
     Dates: start: 19950510, end: 20100101
  26. PREVACID 24 HR [Suspect]
     Active Substance: LANSOPRAZOLE
     Route: 065
  27. CLOPIDOGREL [Concomitant]
     Active Substance: CLOPIDOGREL BISULFATE
     Indication: MYOCARDIAL INFARCTION
     Dates: start: 2015
  28. PREVACID [Suspect]
     Active Substance: LANSOPRAZOLE
     Indication: GASTROOESOPHAGEAL REFLUX DISEASE
     Route: 065
     Dates: start: 19950510, end: 20100101
  29. PROTONIX [Suspect]
     Active Substance: PANTOPRAZOLE SODIUM
     Indication: GASTROOESOPHAGEAL REFLUX DISEASE
     Route: 065
     Dates: start: 201408, end: 201605
  30. PROTONIX [Suspect]
     Active Substance: PANTOPRAZOLE SODIUM
     Indication: GASTROOESOPHAGEAL REFLUX DISEASE
     Route: 065
     Dates: start: 20150117, end: 20160518
  31. FUROSEMIDE. [Concomitant]
     Active Substance: FUROSEMIDE
     Indication: OEDEMA
     Dates: start: 2015
  32. TUMS [Concomitant]
     Active Substance: CALCIUM CARBONATE
     Dosage: OTC
     Dates: start: 1995, end: 2016
  33. MYLANTA [Concomitant]
     Active Substance: ALUMINUM HYDROXIDE\DIMETHICONE\MAGNESIUM HYDROXIDE
     Dosage: OTC
     Dates: start: 1995, end: 2016
  34. PEPTO-BISMOL [Concomitant]
     Active Substance: BISMUTH SUBSALICYLATE
     Dosage: OTC
  35. METOPROLOL. [Concomitant]
     Active Substance: METOPROLOL
     Indication: HYPERTENSION
     Dates: start: 2015
  36. FUROSEMIDE. [Concomitant]
     Active Substance: FUROSEMIDE
     Indication: HYPERTENSION
     Dates: start: 2015

REACTIONS (4)
  - Renal injury [Unknown]
  - Acute kidney injury [Not Recovered/Not Resolved]
  - Chronic kidney disease [Not Recovered/Not Resolved]
  - Renal failure [Unknown]

NARRATIVE: CASE EVENT DATE: 20140910
